FAERS Safety Report 4441601-4 (Version None)
Quarter: 2004Q3

REPORT INFORMATION
  Report Type: 
  Country: None (occurrence: None)
  Receive Date: 20040907
  Receipt Date: 20040826
  Transmission Date: 20050211
  Serious: Yes (Other)
  Sender: FDA-Public Use
  Company Number: 200418693GDDC

PATIENT
  Age: 70 Year
  Sex: Male

DRUGS (7)
  1. LEFLUNOMIDE [Suspect]
     Indication: RHEUMATOID ARTHRITIS
     Route: 048
  2. BUMETANIDE [Concomitant]
     Dosage: DOSE: UNK
  3. FUROSEMIDE [Concomitant]
     Dosage: DOSE: UNK
  4. ATENOLOL [Concomitant]
     Dosage: DOSE: UNK
  5. ASPIRIN [Concomitant]
     Dosage: DOSE: UNK
  6. AMIODARONE [Concomitant]
     Dosage: DOSE: UNK
  7. LISINOPRIL [Concomitant]
     Dosage: DOSE: UNK

REACTIONS (7)
  - ANGIOPATHY [None]
  - BLOOD CREATININE INCREASED [None]
  - DRUG EFFECT DECREASED [None]
  - GLOMERULOSCLEROSIS [None]
  - OVERDOSE [None]
  - PROTEINURIA [None]
  - TUBULOINTERSTITIAL NEPHRITIS [None]
